FAERS Safety Report 8835138 (Version 1)
Quarter: 2012Q4

REPORT INFORMATION
  Report Type: 
  Country: US (occurrence: US)
  Receive Date: 20121011
  Receipt Date: 20121011
  Transmission Date: 20130627
  Serious: Yes (Other)
  Sender: FDA-Public Use
  Company Number: US-AMGEN-USASP2012063376

PATIENT
  Age: 83 Year
  Sex: Female

DRUGS (2)
  1. SENSIPAR [Suspect]
     Indication: HYPERPARATHYROIDISM SECONDARY
     Dosage: 30 mg, bid
     Dates: start: 201203
  2. LIPITOR [Concomitant]

REACTIONS (2)
  - Deafness [Unknown]
  - Hypoacusis [Unknown]
